FAERS Safety Report 12192961 (Version 3)
Quarter: 2016Q2

REPORT INFORMATION
  Report Type: Report from Study
  Country: DE (occurrence: DE)
  Receive Date: 20160318
  Receipt Date: 20160420
  Transmission Date: 20160815
  Serious: Yes (Hospitalization, Other)
  Sender: FDA-Public Use
  Company Number: DE-GILEAD-2016-0203238

PATIENT
  Age: 60 Year
  Sex: Female
  Weight: 58 kg

DRUGS (6)
  1. SPIRONOLACTON [Concomitant]
     Active Substance: SPIRONOLACTONE
     Indication: ASCITES
     Dosage: 100 MG, UNK
     Route: 048
     Dates: start: 2012
  2. LEDIPASVIR/SOFOSBUVIR [Suspect]
     Active Substance: LEDIPASVIR\SOFOSBUVIR
     Dosage: 1 DF, QD
     Route: 048
     Dates: start: 20151005, end: 20151031
  3. TORASEMID [Concomitant]
     Active Substance: TORSEMIDE
     Indication: ASCITES
     Dosage: 5 MG, UNK
     Route: 048
     Dates: start: 2012
  4. LEDIPASVIR/SOFOSBUVIR [Suspect]
     Active Substance: LEDIPASVIR\SOFOSBUVIR
     Indication: CHRONIC HEPATITIS C
     Dosage: 2 DF, QD
     Route: 048
     Dates: start: 201510, end: 201510
  5. PANTOPRAZOL [Concomitant]
     Active Substance: PANTOPRAZOLE SODIUM
     Indication: GASTRITIS
     Dosage: 40 MG, UNK
     Route: 048
     Dates: start: 2011
  6. METOPROLOL. [Concomitant]
     Active Substance: METOPROLOL
     Indication: HYPERTENSION
     Dosage: 47.5 MG, UNK
     Route: 048
     Dates: start: 2011

REACTIONS (4)
  - Long QT syndrome [Recovered/Resolved]
  - Overdose [Recovered/Resolved]
  - Tachyarrhythmia [Recovered/Resolved]
  - Cardiac failure [Recovered/Resolved]

NARRATIVE: CASE EVENT DATE: 20151008
